FAERS Safety Report 5781134-6 (Version None)
Quarter: 2008Q2

REPORT INFORMATION
  Report Type: 
  Country: None (occurrence: None)
  Receive Date: 20080620
  Receipt Date: 20080602
  Transmission Date: 20081010
  Serious: Yes (Death, Other)
  Sender: FDA-Public Use
  Company Number: CA-PFIZER INC-2008050911

PATIENT
  Age: 56 Year
  Sex: Female

DRUGS (7)
  1. CELECOXIB [Suspect]
     Route: 048
  2. MORPHINE SULFATE [Suspect]
  3. DIAZEPAM [Suspect]
  4. CITALOPRAM HYDROBROMIDE [Suspect]
     Route: 048
  5. DIPHENHYDRAMINE HCL [Suspect]
     Route: 048
  6. TRAZODONE HCL [Suspect]
     Route: 048
  7. BUPROPION HCL [Suspect]
     Route: 048

REACTIONS (1)
  - SUBSTANCE ABUSE [None]
